FAERS Safety Report 4488870-2 (Version None)
Quarter: 2004Q4

REPORT INFORMATION
  Report Type: 
  Country: None (occurrence: None)
  Receive Date: 20041029
  Receipt Date: 20041019
  Transmission Date: 20050328
  Serious: Yes (Life-Threatening, Disabling)
  Sender: FDA-Public Use
  Company Number: US-MERCK-0410USA02925

PATIENT
  Age: 62 Year
  Sex: Female

DRUGS (9)
  1. VIOXX [Suspect]
     Indication: PAIN MANAGEMENT
     Route: 048
     Dates: start: 19990101, end: 20040101
  2. BEXTRA [Concomitant]
     Route: 065
  3. KLONOPIN [Concomitant]
     Route: 065
  4. PREMARIN [Concomitant]
     Route: 065
  5. ZANAFLEX [Concomitant]
     Route: 065
  6. NEXIUM [Concomitant]
     Route: 065
  7. LEXAPRO [Concomitant]
     Route: 065
  8. WELLBUTRIN XL [Concomitant]
     Route: 065
  9. HYDROCHLOROTHIAZIDE [Concomitant]
     Route: 065

REACTIONS (6)
  - CHEST PAIN [None]
  - FLUID RETENTION [None]
  - HEADACHE [None]
  - HYPERTENSION [None]
  - JOINT SWELLING [None]
  - MEMORY IMPAIRMENT [None]
